FAERS Safety Report 8848612 (Version 1)
Quarter: 2012Q4

REPORT INFORMATION
  Report Type: Spontaneous
  Country: GB (occurrence: None)
  Receive Date: 20121015
  Receipt Date: 20121015
  Transmission Date: 20130627
  Serious: No
  Sender: FDA-Public Use
  Company Number: GB-GDP-12415286

PATIENT
  Age: 49 Year
  Sex: Female
  Weight: 94 kg

DRUGS (1)
  1. DOXYCYCLINE [Suspect]
     Indication: PRODUCT USED FOR UNKNOWN INDICATION
     Dosage: a few months, unknown indication

REACTIONS (3)
  - Fatigue [None]
  - Malaise [None]
  - Haematocrit increased [None]
